FAERS Safety Report 5845165-X (Version None)
Quarter: 2008Q3

REPORT INFORMATION
  Report Type: 
  Country: None (occurrence: None)
  Receive Date: 20080814
  Receipt Date: 20080805
  Transmission Date: 20090109
  Serious: Yes (Other)
  Sender: FDA-Public Use
  Company Number: PHHY2008FR12406

PATIENT
  Age: 9 Year
  Sex: Male
  Weight: 21 kg

DRUGS (3)
  1. RITALIN [Suspect]
     Indication: ATTENTION DEFICIT/HYPERACTIVITY DISORDER
     Dosage: 10 MG/DAY
     Dates: start: 20080501, end: 20080614
  2. RITALIN [Suspect]
     Dosage: 15 MG/DAY
     Dates: start: 20080615, end: 20080628
  3. CELESTAMINE TAB [Concomitant]

REACTIONS (4)
  - DECREASED APPETITE [None]
  - JAUNDICE [None]
  - MUSCLE SPASMS [None]
  - MYODESOPSIA [None]
